FAERS Safety Report 7024756-7 (Version None)
Quarter: 2010Q4

REPORT INFORMATION
  Report Type: 
  Country: None (occurrence: None)
  Receive Date: 20101001
  Receipt Date: 20100922
  Transmission Date: 20110411
  Serious: Yes (Other)
  Sender: FDA-Public Use
  Company Number: US-JNJFOC-20100605813

PATIENT
  Sex: Female

DRUGS (4)
  1. REMICADE [Suspect]
     Indication: RHEUMATOID ARTHRITIS
     Route: 042
  2. REMICADE [Suspect]
     Route: 042
  3. BENADRYL [Concomitant]
  4. TYLENOL [Concomitant]
     Indication: PREMEDICATION

REACTIONS (4)
  - BACK PAIN [None]
  - DYSPNOEA [None]
  - HYPERSENSITIVITY [None]
  - MUSCULOSKELETAL CHEST PAIN [None]
